FAERS Safety Report 8964084 (Version 2)
Quarter: 2013Q1

REPORT INFORMATION
  Report Type: Spontaneous
  Country: FR (occurrence: FR)
  Receive Date: 20121214
  Receipt Date: 20130109
  Transmission Date: 20140127
  Serious: Yes (Other)
  Sender: FDA-Public Use
  Company Number: FR-BAYER-2012-131012

PATIENT
  Age: 61 Year
  Sex: Male

DRUGS (3)
  1. MOXIFLOXACIN ORAL [Suspect]
     Indication: ACUTE SINUSITIS
     Dosage: 400 MG, BID
  2. CORTANCYL [Concomitant]
     Indication: ACUTE SINUSITIS
     Dosage: 60 MG, UNK
  3. MOPRAL [Concomitant]
     Indication: ACUTE SINUSITIS
     Dosage: DAILY DOSE 20 MG

REACTIONS (6)
  - Uveitis [Recovered/Resolved with Sequelae]
  - Eye pain [Recovered/Resolved with Sequelae]
  - Pigment dispersion syndrome [Recovered/Resolved with Sequelae]
  - Iris transillumination defect [Recovered/Resolved with Sequelae]
  - Ocular hypertension [Recovered/Resolved with Sequelae]
  - Pupils unequal [Recovered/Resolved with Sequelae]
